FAERS Safety Report 26153081 (Version 1)
Quarter: 2025Q4

REPORT INFORMATION
  Report Type: Spontaneous
  Country: US (occurrence: US)
  Receive Date: 20251214
  Receipt Date: 20251214
  Transmission Date: 20260118
  Serious: Yes (Hospitalization, Other)
  Sender: ALEXION PHARMACEUTICALS
  Company Number: US-AstraZeneca-CH-01009746A

PATIENT
  Age: 60 Year
  Sex: Male
  Weight: 86.168 kg

DRUGS (2)
  1. IMFINZI [Suspect]
     Active Substance: DURVALUMAB
     Indication: Adjuvant therapy
     Dosage: UNK
  2. DOCETAXEL [Suspect]
     Active Substance: DOCETAXEL
     Indication: Oesophageal adenocarcinoma
     Dosage: UNK
     Route: 065

REACTIONS (6)
  - Vomiting [Unknown]
  - Nausea [Unknown]
  - Dehydration [Unknown]
  - Dysphagia [Unknown]
  - Gastrointestinal toxicity [Unknown]
  - Diarrhoea [Unknown]

NARRATIVE: CASE EVENT DATE: 20251104
